FAERS Safety Report 9525709 (Version 1)
Quarter: 2013Q3

REPORT INFORMATION
  Report Type: Spontaneous
  Country: US (occurrence: AU)
  Receive Date: 20130916
  Receipt Date: 20130916
  Transmission Date: 20140515
  Serious: Yes (Disabling)
  Sender: FDA-Public Use
  Company Number: US-SANOFI-AVENTIS-2013SA089475

PATIENT
  Age: 55 Year
  Sex: Male

DRUGS (3)
  1. TELFAST [Suspect]
     Indication: SINUS DISORDER
     Route: 048
     Dates: start: 20000101, end: 20040119
  2. MICARDIS [Suspect]
     Indication: HYPERTENSION
     Route: 048
     Dates: start: 20000801, end: 20040119
  3. DAPA-TABS [Suspect]
     Indication: PRODUCT USED FOR UNKNOWN INDICATION
     Route: 065

REACTIONS (18)
  - Guillain-Barre syndrome [Not Recovered/Not Resolved]
  - Coordination abnormal [Not Recovered/Not Resolved]
  - Gait disturbance [Not Recovered/Not Resolved]
  - Muscle contractions involuntary [Not Recovered/Not Resolved]
  - Tremor [Not Recovered/Not Resolved]
  - Dystonia [Not Recovered/Not Resolved]
  - Extrapyramidal disorder [Not Recovered/Not Resolved]
  - Parkinson^s disease [Not Recovered/Not Resolved]
  - Neuropathy peripheral [Not Recovered/Not Resolved]
  - Hyperhidrosis [Not Recovered/Not Resolved]
  - Hearing impaired [Not Recovered/Not Resolved]
  - Encephalitis [Not Recovered/Not Resolved]
  - Encephalopathy [Not Recovered/Not Resolved]
  - Delirium [Not Recovered/Not Resolved]
  - Meningitis [Not Recovered/Not Resolved]
  - Vestibular disorder [Not Recovered/Not Resolved]
  - Dizziness [Not Recovered/Not Resolved]
  - Insomnia [Not Recovered/Not Resolved]
